FAERS Safety Report 9956890 (Version 1)
Quarter: 2014Q1

REPORT INFORMATION
  Report Type: Report from Study
  Country: US (occurrence: US)
  Receive Date: 20140304
  Receipt Date: 20140304
  Transmission Date: 20141002
  Serious: No
  Sender: FDA-Public Use
  Company Number: US-ABBVIE-13P-163-1097184-00

PATIENT
  Sex: Male

DRUGS (3)
  1. HUMIRA [Suspect]
     Indication: PSORIASIS
  2. ANTIHYPERTENSIVES [Concomitant]
     Indication: BLOOD PRESSURE
  3. UNKNOWN DIABETES MEDICATION [Concomitant]
     Indication: DIABETES MELLITUS

REACTIONS (1)
  - Injection site nodule [Recovered/Resolved]
